FAERS Safety Report 7019471-X (Version None)
Quarter: 2010Q3

REPORT INFORMATION
  Report Type: 
  Country: None (occurrence: None)
  Receive Date: 20100928
  Receipt Date: 20100917
  Transmission Date: 20110219
  Serious: No
  Sender: FDA-Public Use
  Company Number: US-BIOGENIDEC-2010BI032645

PATIENT
  Age: 57 Year
  Sex: Female

DRUGS (2)
  1. TYSABRI [Suspect]
     Indication: MULTIPLE SCLEROSIS
     Route: 042
     Dates: start: 20050222, end: 20050222
  2. TYSABRI [Suspect]
     Route: 042
     Dates: start: 20100831

REACTIONS (4)
  - EMOTIONAL DISTRESS [None]
  - FALL [None]
  - HEADACHE [None]
  - SKIN DISORDER [None]
